FAERS Safety Report 8855588 (Version 2)
Quarter: 2013Q3

REPORT INFORMATION
  Report Type: Spontaneous
  Country: US (occurrence: US)
  Receive Date: 20121023
  Receipt Date: 20130930
  Transmission Date: 20140515
  Serious: No
  Sender: FDA-Public Use
  Company Number: US-AMGEN-USASP2012059523

PATIENT
  Age: 73 Year
  Sex: Female
  Weight: 142 kg

DRUGS (10)
  1. ENBREL [Suspect]
     Indication: RHEUMATOID ARTHRITIS
     Dosage: 50 MG, ONCE A WEEK
     Route: 058
  2. BENAZEPRIL [Concomitant]
     Dosage: 40 MG, UNK
  3. METOPROLOL TARTRATE [Concomitant]
     Dosage: 25 MG, UNK
  4. CRESTOR [Concomitant]
     Dosage: 10 MG, UNK
  5. ASA [Concomitant]
     Dosage: 81 MG, LOW DOSE TAB
  6. ZETIA [Concomitant]
     Dosage: 10 MG, UNK
  7. PEPCID AC [Concomitant]
     Dosage: 20 MG, UNK
  8. MULTIVITAMIN                       /00097801/ [Concomitant]
     Dosage: UNK
  9. LOMOTIL [Concomitant]
     Dosage: 2.5 MG, UNK
  10. VITAMIN D /00107901/ [Suspect]
     Dosage: 1000 UNIT, UNK

REACTIONS (5)
  - Injection site bruising [Unknown]
  - Fatigue [Unknown]
  - Vision blurred [Unknown]
  - Weight decreased [Unknown]
  - Paraesthesia [Unknown]
